FAERS Safety Report 4688799-0 (Version None)
Quarter: 2005Q2

REPORT INFORMATION
  Report Type: 
  Country: None (occurrence: None)
  Receive Date: 20050610
  Receipt Date: 20050530
  Transmission Date: 20051028
  Serious: Yes (Other)
  Sender: FDA-Public Use
  Company Number: 2005080433

PATIENT
  Sex: Female

DRUGS (3)
  1. DRAMAMINE DROWSY FORMULA (DIMENHYDRINATE) [Suspect]
     Indication: MOTION SICKNESS
     Dosage: ONE AND A HALF TABLETS ONE TIME, ORAL
     Route: 048
     Dates: start: 20050530, end: 20050530
  2. ALPRAZOLAM [Concomitant]
  3. ANTIDEPRESSANTS (ANTIDEPRESSANTS) [Concomitant]

REACTIONS (2)
  - HALLUCINATION [None]
  - MALAISE [None]
